FAERS Safety Report 4897749-3 (Version None)
Quarter: 2006Q1

REPORT INFORMATION
  Report Type: 
  Country: None (occurrence: None)
  Receive Date: 20060201
  Receipt Date: 20060123
  Transmission Date: 20060701
  Serious: Yes (Hospitalization)
  Sender: FDA-Public Use
  Company Number: RU-ABBOTT-06P-251-0323104-00

PATIENT
  Sex: Female
  Weight: 97 kg

DRUGS (2)
  1. TRANDOLAPRIL/VERAPAMIL [Suspect]
     Indication: HYPERTENSION
     Dosage: 180/2 MG
     Route: 048
     Dates: start: 20051026, end: 20051211
  2. METFORMIN [Concomitant]
     Indication: DIABETES MELLITUS NON-INSULIN-DEPENDENT
     Route: 048
     Dates: start: 20030201

REACTIONS (2)
  - ANGINA PECTORIS [None]
  - ARRHYTHMIA [None]
